FAERS Safety Report 8369055-6 (Version None)
Quarter: 2012Q2

REPORT INFORMATION
  Report Type: 
  Country: None (occurrence: None)
  Receive Date: 20120518
  Receipt Date: 20120508
  Transmission Date: 20120825
  Serious: Yes (Other)
  Sender: FDA-Public Use
  Company Number: US-JNJFOC-20120406689

PATIENT
  Age: 70 Year
  Sex: Female
  Weight: 120.18 kg

DRUGS (17)
  1. CELEBREX [Suspect]
     Dosage: DAILY AS NEEDED ORALLY BEFORE 10-MAR
     Route: 048
  2. LOVAZA [Concomitant]
     Dosage: TAKEN DAILY
  3. ATENOLOL [Concomitant]
     Indication: HYPERTENSION
     Dosage: DAILY
  4. IBUPROFEN [Suspect]
     Indication: OSTEOARTHRITIS
     Route: 065
  5. CELEBREX [Suspect]
     Indication: OSTEOARTHRITIS
     Route: 048
  6. MELOXICAM [Suspect]
     Indication: OSTEOARTHRITIS
     Route: 065
     Dates: start: 20110101, end: 20111001
  7. MEGAVIT B COMPLEX [Concomitant]
     Dosage: TAKEN DAILY
  8. SYNTHROID [Concomitant]
     Indication: HYPOTHYROIDISM
     Dosage: TAKEN DAILY
  9. GLUCOSAMINE SULFATE [Concomitant]
     Indication: ARTHROPATHY
  10. NSAIDS [Suspect]
     Indication: PRODUCT USED FOR UNKNOWN INDICATION
     Route: 065
  11. CELEBREX [Suspect]
     Route: 048
     Dates: end: 20110209
  12. CELEBREX [Suspect]
     Route: 048
     Dates: end: 20110101
  13. MULTI-VITAMINS [Concomitant]
     Indication: EYE DISORDER
     Dosage: TAKEN DAILY
  14. ASPIRIN [Concomitant]
     Dosage: TAKEN DAILY
  15. CALCIUM WITH VITAMIN D [Concomitant]
     Dosage: 1200MG/1000MG
  16. HYDROCHLOROTHIAZIDE [Concomitant]
     Indication: HYPERTENSION
     Dosage: DAILY
  17. LOSARTAN POTASSIUM [Concomitant]
     Indication: HYPERTENSION
     Dosage: 100 MG DAILY

REACTIONS (8)
  - RENAL IMPAIRMENT [None]
  - PAIN IN EXTREMITY [None]
  - MUSCULOSKELETAL DISCOMFORT [None]
  - MYALGIA [None]
  - BURSITIS [None]
  - PAIN [None]
  - BLOOD CHOLESTEROL INCREASED [None]
  - LIMB DISCOMFORT [None]
